FAERS Safety Report 5273170-3 (Version None)
Quarter: 2007Q1

REPORT INFORMATION
  Report Type: 
  Country: None (occurrence: None)
  Receive Date: 20070322
  Receipt Date: 20070312
  Transmission Date: 20070707
  Serious: Yes (Other)
  Sender: FDA-Public Use
  Company Number: US-PFIZER INC-2007019307

PATIENT
  Sex: Female
  Weight: 58.1 kg

DRUGS (6)
  1. CHANTIX [Suspect]
     Indication: SMOKING CESSATION THERAPY
     Dosage: FREQ:DAILY
  2. PREMPRO [Concomitant]
  3. BISOPROLOL [Concomitant]
  4. SPIRIVA [Concomitant]
  5. ALBUTEROL [Concomitant]
  6. KLONOPIN [Concomitant]
     Indication: NEURALGIA

REACTIONS (3)
  - ABNORMAL DREAMS [None]
  - DIARRHOEA [None]
  - UTERINE DILATION AND CURETTAGE [None]
